FAERS Safety Report 10678327 (Version 1)
Quarter: 2014Q4

REPORT INFORMATION
  Report Type: Spontaneous
  Country: US (occurrence: None)
  Receive Date: 20141224
  Receipt Date: 20141224
  Transmission Date: 20150529
  Serious: No
  Sender: FDA-Public Use
  Company Number: None

PATIENT
  Age: 19 Year
  Sex: Female
  Weight: 88.45 kg

DRUGS (1)
  1. CIPRODEX [Suspect]
     Active Substance: CIPROFLOXACIN HYDROCHLORIDE\DEXAMETHASONE
     Indication: EAR INFECTION
     Dosage: 4 DROPS, TWICE DAILY, INTO THE EAR
     Dates: start: 20141222, end: 20141223

REACTIONS (2)
  - Ear pain [None]
  - Condition aggravated [None]

NARRATIVE: CASE EVENT DATE: 20141223
